FAERS Safety Report 7636317-7 (Version None)
Quarter: 2011Q3

REPORT INFORMATION
  Report Type: 
  Country: None (occurrence: None)
  Receive Date: 20110726
  Receipt Date: 20110705
  Transmission Date: 20111222
  Serious: Yes (Hospitalization)
  Sender: FDA-Public Use
  Company Number: US-GLAXOSMITHKLINE-A0887064A

PATIENT
  Age: 52 Year
  Sex: Male
  Weight: 99 kg

DRUGS (4)
  1. CLONAZEPAM [Concomitant]
  2. AVANDIA [Suspect]
     Indication: DIABETES MELLITUS
     Dosage: 4MG PER DAY
     Route: 048
     Dates: start: 20010222, end: 20010901
  3. HUMALOG [Concomitant]
  4. ATENOLOL [Concomitant]

REACTIONS (4)
  - STERNAL FRACTURE [None]
  - MYOCARDIAL INFARCTION [None]
  - CORONARY ANGIOPLASTY [None]
  - CORONARY ARTERY BYPASS [None]
